FAERS Safety Report 17149843 (Version 1)
Quarter: 2019Q4

REPORT INFORMATION
  Report Type: Spontaneous
  Country: FR (occurrence: FR)
  Receive Date: 20191213
  Receipt Date: 20191213
  Transmission Date: 20200122
  Serious: Yes (Death, Other)
  Sender: FDA-Public Use
  Company Number: FR-AMGEN-FRASP2019205695

PATIENT
  Age: 50 Year
  Sex: Male
  Weight: 90 kg

DRUGS (12)
  1. BLINCYTO [Suspect]
     Active Substance: BLINATUMOMAB
     Indication: B-CELL TYPE ACUTE LEUKAEMIA
     Dosage: 3 (1), CYCLICAL
     Route: 041
     Dates: start: 20191115, end: 20191126
  2. BACTRIM [Concomitant]
     Active Substance: SULFAMETHOXAZOLE\TRIMETHOPRIM
     Dosage: UNK
     Route: 048
  3. ONCASPAR [Suspect]
     Active Substance: PEGASPARGASE
     Indication: B-CELL TYPE ACUTE LEUKAEMIA
     Dosage: 3750 INTERNATIONAL UNIT, (1) CYCLICAL
     Route: 041
     Dates: start: 20191113, end: 20191113
  4. FORTUM [CEFTAZIDIME PENTAHYDRATE] [Concomitant]
     Active Substance: CEFTAZIDIME
     Dosage: UNK
     Route: 042
     Dates: start: 20191106
  5. CIPROFLOXACINE [CIPROFLOXACIN] [Concomitant]
     Active Substance: CIPROFLOXACIN
     Dosage: UNK
     Dates: start: 20191125
  6. METHOTREXATE MYLAN [Suspect]
     Active Substance: METHOTREXATE SODIUM
     Indication: B-CELL TYPE ACUTE LEUKAEMIA
     Dosage: 15 MILLIGRAM, CYCLICAL
     Route: 039
     Dates: start: 20191106, end: 20191106
  7. VANCOMYCINE [VANCOMYCIN] [Concomitant]
     Active Substance: VANCOMYCIN
     Dosage: UNK
     Route: 042
     Dates: start: 20191121, end: 20191125
  8. MYCAMINE [Concomitant]
     Active Substance: MICAFUNGIN SODIUM
     Dosage: UNK
     Dates: start: 20191114
  9. BIPRETERAX [INDAPAMIDE;PERINDOPRIL ARGININE] [Concomitant]
     Active Substance: INDAPAMIDE\PERINDOPRIL ARGININE
     Dosage: UNK
     Route: 048
  10. ZELITREX [Concomitant]
     Active Substance: VALACYCLOVIR HYDROCHLORIDE
     Dosage: UNK
     Route: 048
  11. AMIKLIN [AMIKACIN] [Concomitant]
     Dosage: UNK
     Route: 042
     Dates: start: 20191106
  12. LINEZOLIDE [Concomitant]
     Active Substance: LINEZOLID
     Dosage: UNK
     Route: 042
     Dates: start: 20191125

REACTIONS (3)
  - Intracardiac thrombus [Fatal]
  - Cardiogenic shock [Fatal]
  - Cerebral ischaemia [Fatal]

NARRATIVE: CASE EVENT DATE: 20191129
